FAERS Safety Report 24256673 (Version 1)
Quarter: 2024Q3

REPORT INFORMATION
  Report Type: Spontaneous
  Country: GB (occurrence: GB)
  Receive Date: 20240828
  Receipt Date: 20240828
  Transmission Date: 20241016
  Serious: Yes (Other)
  Sender: DR REDDYS
  Company Number: None

PATIENT
  Age: 54 Year
  Sex: Female
  Weight: 116 kg

DRUGS (8)
  1. FEXOFENADINE [Suspect]
     Active Substance: FEXOFENADINE HYDROCHLORIDE
     Indication: Ill-defined disorder
     Dosage: ONE TABLET TO BE TAKEN ONCE A DAY FOR CHRONIC ??120 MG TABLETS
     Dates: start: 20240815
  2. EXEMESTANE [Concomitant]
     Active Substance: EXEMESTANE
     Indication: Ill-defined disorder
     Dosage: ONE TABLET TO BE TAKEN ONCE A DAY (FOR 10 YEARS...?TPP YC - PLEASE RECLASSIFY
     Dates: start: 20240402, end: 20240522
  3. NAPROXEN [Concomitant]
     Active Substance: NAPROXEN
     Indication: Ill-defined disorder
     Dosage: ONE TO BE TAKEN TWICE DAILY WHEN REQUIRED FOR PAIN?TPP YC - PLEASE RECLASSIFY
     Dates: start: 20240402
  4. OMEPRAZOLE [Concomitant]
     Active Substance: OMEPRAZOLE
     Indication: Ill-defined disorder
     Dosage: ONE CAPSULE TO BE TAKEN ONCE A DAY TO REDUCE ST...?TPP YC - PLEASE RECLASSIFY
     Dates: start: 20240402
  5. OXYBUTYNIN [Concomitant]
     Active Substance: OXYBUTYNIN\OXYBUTYNIN CHLORIDE
     Indication: Ill-defined disorder
     Dosage: TWO TABLETS TO BE TAKEN AT NIGHT?TPP YC - PLEASE RECLASSIFY
     Dates: start: 20240402
  6. TEGRETOL [Concomitant]
     Active Substance: CARBAMAZEPINE
     Indication: Ill-defined disorder
     Dosage: 1 TO BE TAKEN EACH NIGHT?TPP YC - PLEASE RECLASSIFY
     Dates: start: 20240402
  7. VENCARM [Concomitant]
     Indication: Ill-defined disorder
     Dosage: ONE CAPSULE TO BE TAKEN ONCE A DAY?TPP YC - PLEASE RECLASSIFY
     Dates: start: 20240402
  8. AROMASIN [Concomitant]
     Active Substance: EXEMESTANE
     Indication: Ill-defined disorder
     Dosage: TAKE ONE ONCE DAILY (FOR 10YRS UNTIL 2033)?TPP YC - PLEASE RECLASSIFY
     Dates: start: 20240522

REACTIONS (1)
  - Angioedema [Recovered/Resolved]
